FAERS Safety Report 26129042 (Version 2)
Quarter: 2025Q4

REPORT INFORMATION
  Report Type: Other
  Country: US (occurrence: US)
  Receive Date: 20251208
  Receipt Date: 20251216
  Transmission Date: 20260117
  Serious: Yes (Hospitalization, Other)
  Sender: ALVOGEN
  Company Number: US-ALVOGEN-2025099124

PATIENT
  Age: 17 Year
  Sex: Female
  Weight: 61 kg

DRUGS (1)
  1. FLECAINIDE [Suspect]
     Active Substance: FLECAINIDE
     Indication: Product used for unknown indication
     Dosage: 180 TABLETS OF 50 MG (A TOTAL OF 9 G INGESTED)

REACTIONS (13)
  - Generalised tonic-clonic seizure [Unknown]
  - Toxicity to various agents [Unknown]
  - Intentional self-injury [Unknown]
  - Pulmonary oedema [Recovered/Resolved]
  - Bradyarrhythmia [Unknown]
  - Hypertransaminasaemia [Recovered/Resolved]
  - Muscular weakness [Recovered/Resolved]
  - Electrocardiogram QRS complex prolonged [Recovered/Resolved]
  - Electrocardiogram QT prolonged [Recovered/Resolved]
  - Cardiac arrest [Unknown]
  - Arrhythmia [Recovered/Resolved]
  - Hypotension [Unknown]
  - Intentional overdose [Unknown]
